FAERS Safety Report 5630083-2 (Version None)
Quarter: 2008Q1

REPORT INFORMATION
  Report Type: 
  Country: None (occurrence: None)
  Receive Date: 20080218
  Receipt Date: 20080208
  Transmission Date: 20080703
  Serious: Yes (Other)
  Sender: FDA-Public Use
  Company Number: PHEH2008US01724

PATIENT
  Age: 58 Year
  Sex: Female

DRUGS (5)
  1. CISPLATIN + DOXORUBICIN [Suspect]
  2. AROMASIN [Suspect]
  3. FEMARA [Suspect]
  4. XELODA [Suspect]
     Indication: BREAST CANCER RECURRENT
     Dates: start: 20070501, end: 20070701
  5. RADIATION THERAPY [Suspect]
     Indication: BREAST CANCER RECURRENT

REACTIONS (2)
  - EYE INFLAMMATION [None]
  - MACULAR DEGENERATION [None]
